FAERS Safety Report 4432150-8 (Version None)
Quarter: 2004Q3

REPORT INFORMATION
  Report Type: 
  Country: None (occurrence: None)
  Receive Date: 20040820
  Receipt Date: 20040805
  Transmission Date: 20050211
  Serious: Yes (Other)
  Sender: FDA-Public Use
  Company Number: 2004EU001512

PATIENT
  Age: 25 Year
  Sex: Female

DRUGS (1)
  1. FK506 (TACROLIMUS) [Suspect]
     Indication: LIVER TRANSPLANT
     Dosage: 4.00 MG
     Dates: start: 19960101

REACTIONS (3)
  - ARTHRITIS [None]
  - GOUT [None]
  - PODAGRA [None]
